FAERS Safety Report 7564796-2 (Version None)
Quarter: 2011Q2

REPORT INFORMATION
  Report Type: 
  Country: None (occurrence: None)
  Receive Date: 20110622
  Receipt Date: 20110203
  Transmission Date: 20111010
  Serious: Yes (Other)
  Sender: FDA-Public Use
  Company Number: US-MYLANLABS-2010S1021904

PATIENT
  Age: 47 Year
  Sex: Female

DRUGS (11)
  1. CLOZAPINE [Suspect]
     Indication: SCHIZOAFFECTIVE DISORDER
     Route: 048
     Dates: start: 20101003, end: 20101206
  2. LAMOTRIGINE [Concomitant]
  3. DESMOPRESSIN [Concomitant]
  4. SUMATRIPTAN SUCCINATE [Concomitant]
     Indication: MIGRAINE
  5. BACTRIM DS [Concomitant]
  6. LORAZEPAM [Concomitant]
  7. BENZTROPINE MESYLATE [Concomitant]
     Dosage: AT BEDTIME AND IN AM IF NEEDED
  8. LEXAPRO [Concomitant]
  9. MULTI-VITAMIN [Concomitant]
  10. TRAZODONE HCL [Concomitant]
  11. DOCUSATE [Concomitant]

REACTIONS (2)
  - GRANULOCYTOPENIA [None]
  - LEUKOPENIA [None]
